FAERS Safety Report 5689059-1 (Version None)
Quarter: 2008Q1

REPORT INFORMATION
  Report Type: 
  Country: None (occurrence: None)
  Receive Date: 20080331
  Receipt Date: 20080321
  Transmission Date: 20080703
  Serious: Yes (Other)
  Sender: FDA-Public Use
  Company Number: B0513818A

PATIENT
  Sex: Female

DRUGS (2)
  1. CLAVENTIN [Suspect]
     Indication: DRUG USE FOR UNKNOWN INDICATION
     Dosage: 12G PER DAY
     Route: 065
     Dates: start: 20080317, end: 20080320
  2. AMIKLIN [Concomitant]
     Indication: DRUG USE FOR UNKNOWN INDICATION
     Route: 065
     Dates: start: 20080317

REACTIONS (1)
  - HAEMOLYTIC ANAEMIA [None]
